FAERS Safety Report 20314671 (Version 1)
Quarter: 2022Q1

REPORT INFORMATION
  Report Type: Spontaneous
  Country: KR (occurrence: KR)
  Receive Date: 20220109
  Receipt Date: 20220109
  Transmission Date: 20220423
  Serious: Yes (Hospitalization)
  Sender: FDA-Public Use
  Company Number: KR-SUN PHARMACEUTICAL INDUSTRIES LTD-2021R1-323004

PATIENT
  Age: 49 Year
  Sex: Female

DRUGS (1)
  1. LITHIUM [Suspect]
     Active Substance: LITHIUM
     Indication: Bipolar disorder
     Dosage: UNK
     Route: 065

REACTIONS (4)
  - Embolism venous [Recovering/Resolving]
  - Hypernatraemia [Recovering/Resolving]
  - Nephrogenic diabetes insipidus [Recovering/Resolving]
  - Acute kidney injury [Recovering/Resolving]
